FAERS Safety Report 9555403 (Version 1)
Quarter: 2013Q3

REPORT INFORMATION
  Report Type: Spontaneous
  Country: US (occurrence: None)
  Receive Date: 20130925
  Receipt Date: 20130925
  Transmission Date: 20140515
  Serious: Yes (Other)
  Sender: FDA-Public Use
  Company Number: None

PATIENT
  Age: 70 Year
  Sex: Female
  Weight: 92.08 kg

DRUGS (5)
  1. DILTIAZEM HCL INJECTION [Suspect]
     Indication: ATRIAL FIBRILLATION
     Route: 042
     Dates: start: 20130825, end: 20130825
  2. DILTIAZEM HCL INJECTION [Suspect]
     Indication: TACHYCARDIA
     Route: 042
     Dates: start: 20130825, end: 20130825
  3. METOPROLOL TARTRATE [Concomitant]
  4. TESSALON PEARLE [Concomitant]
  5. DIGOXIN [Concomitant]

REACTIONS (1)
  - Drug ineffective [None]
